FAERS Safety Report 4752292-7 (Version None)
Quarter: 2005Q3

REPORT INFORMATION
  Report Type: 
  Country: None (occurrence: None)
  Receive Date: 20050825
  Receipt Date: 20050428
  Transmission Date: 20060218
  Serious: Yes (Other)
  Sender: FDA-Public Use
  Company Number: US-GLAXOSMITHKLINE-A0556112A

PATIENT
  Age: 39 Year
  Sex: Female
  Weight: 65 kg

DRUGS (1)
  1. PAXIL [Suspect]
     Indication: PANIC DISORDER
     Route: 048
     Dates: start: 20030401, end: 20050331

REACTIONS (3)
  - HEART RATE IRREGULAR [None]
  - PALPITATIONS [None]
  - SYNCOPE [None]
